FAERS Safety Report 14006294 (Version 2)
Quarter: 2017Q4

REPORT INFORMATION
  Report Type: Spontaneous
  Country: FR (occurrence: FR)
  Receive Date: 20170924
  Receipt Date: 20171012
  Transmission Date: 20180321
  Serious: Yes (Other)
  Sender: FDA-Public Use
  Company Number: FR-BEH-2017083701

PATIENT
  Sex: Male

DRUGS (1)
  1. PRIVIGEN [Suspect]
     Active Substance: HUMAN IMMUNOGLOBULIN G
     Indication: SMALL FIBRE NEUROPATHY
     Dosage: UNK, 2 COURSES
     Route: 065

REACTIONS (2)
  - Pancytopenia [Unknown]
  - Renal failure [Unknown]
